FAERS Safety Report 9011856 (Version 1)
Quarter: 2013Q1

REPORT INFORMATION
  Report Type: Spontaneous
  Country: US (occurrence: None)
  Receive Date: 20121228
  Receipt Date: 20121228
  Transmission Date: 20140127
  Serious: Yes (Hospitalization, Other)
  Sender: FDA-Public Use
  Company Number: JPI-P-026818

PATIENT
  Age: 32 Year
  Sex: Female

DRUGS (2)
  1. XYREM [Suspect]
     Indication: CATAPLEXY
     Route: 048
     Dates: start: 20100317
  2. VENLAFAXINE HYDROCHLORIDE [Suspect]
     Indication: PRODUCT USED FOR UNKNOWN INDICATION
     Dates: start: 201207

REACTIONS (10)
  - Cataplexy [None]
  - Fall [None]
  - Hip fracture [None]
  - Exposure during pregnancy [None]
  - Sexual dysfunction [None]
  - Pain in extremity [None]
  - Paraesthesia [None]
  - Vomiting [None]
  - Dizziness [None]
  - Malaise [None]
